FAERS Safety Report 8793107 (Version 2)
Quarter: 2013Q2

REPORT INFORMATION
  Report Type: Spontaneous
  Country: US (occurrence: US)
  Receive Date: 20120918
  Receipt Date: 20130402
  Transmission Date: 20140414
  Serious: No
  Sender: FDA-Public Use
  Company Number: US-ASTRAZENECA-2012SE69173

PATIENT
  Age: 73 Year
  Sex: Female
  Weight: 57.2 kg

DRUGS (4)
  1. NEXIUM EERD [Suspect]
     Indication: GASTROOESOPHAGEAL REFLUX DISEASE
     Route: 048
     Dates: end: 20120816
  2. NEXIUM EERD [Suspect]
     Indication: GASTROOESOPHAGEAL REFLUX DISEASE
     Route: 048
     Dates: end: 20120816
  3. NEXIUM EERD [Suspect]
     Indication: GASTROOESOPHAGEAL REFLUX DISEASE
     Route: 048
     Dates: start: 20120816
  4. NEXIUM EERD [Suspect]
     Indication: GASTROOESOPHAGEAL REFLUX DISEASE
     Route: 048
     Dates: start: 20120816

REACTIONS (4)
  - Reflux laryngitis [Unknown]
  - Dysgeusia [Unknown]
  - Drug ineffective [Unknown]
  - Off label use [Unknown]
